FAERS Safety Report 6651197-4 (Version None)
Quarter: 2010Q1

REPORT INFORMATION
  Report Type: 
  Country: None (occurrence: None)
  Receive Date: 20100322
  Receipt Date: 20100310
  Transmission Date: 20100710
  Serious: Yes (Hospitalization)
  Sender: FDA-Public Use
  Company Number: 007970

PATIENT
  Sex: Female
  Weight: 52.3 kg

DRUGS (9)
  1. CERTOLIZUMAB PEGOL (CERTOLIZUMAB PEGOL) [Suspect]
     Indication: RHEUMATOID ARTHRITIS
     Dosage: (400 MG 1/2 WEEKS SUBCUTANEOUS), (200 MG 1/X 2 WEEKS SUBCUTANEOUS)
     Route: 058
     Dates: start: 20100112, end: 20100208
  2. CERTOLIZUMAB PEGOL (CERTOLIZUMAB PEGOL) [Suspect]
     Indication: RHEUMATOID ARTHRITIS
     Dosage: (400 MG 1/2 WEEKS SUBCUTANEOUS), (200 MG 1/X 2 WEEKS SUBCUTANEOUS)
     Route: 058
     Dates: start: 20100223, end: 20100223
  3. METHOTREXATE [Concomitant]
  4. DEFALZACORT [Concomitant]
  5. MELOXICAM [Concomitant]
  6. HYDROCHLOROTHIAZIDE [Concomitant]
  7. FOLIC ACID [Concomitant]
  8. ISONIAZID [Concomitant]
  9. PYRIDOXINE HYDROCHLORIDE [Concomitant]

REACTIONS (12)
  - ALANINE AMINOTRANSFERASE INCREASED [None]
  - ARTHRALGIA [None]
  - ASPARTATE AMINOTRANSFERASE INCREASED [None]
  - BILIRUBIN CONJUGATED INCREASED [None]
  - BLOOD BILIRUBIN INCREASED [None]
  - JOINT SWELLING [None]
  - LEUKOCYTOSIS [None]
  - PAIN [None]
  - PYREXIA [None]
  - REFUSAL OF TREATMENT BY PATIENT [None]
  - THROMBOCYTOPENIA [None]
  - URINARY TRACT INFECTION [None]
